FAERS Safety Report 11078133 (Version 2)
Quarter: 2015Q2

REPORT INFORMATION
  Report Type: Spontaneous
  Country: FR (occurrence: FR)
  Receive Date: 20150430
  Receipt Date: 20150601
  Transmission Date: 20150821
  Serious: Yes (Hospitalization)
  Sender: FDA-Public Use
  Company Number: FR-JNJFOC-20150419974

PATIENT
  Age: 32 Year
  Sex: Female

DRUGS (2)
  1. REMICADE [Suspect]
     Active Substance: INFLIXIMAB
     Indication: PRODUCT USED FOR UNKNOWN INDICATION
     Dosage: 1 DF PER CYCLE
     Route: 042
     Dates: start: 201407
  2. REMICADE [Suspect]
     Active Substance: INFLIXIMAB
     Indication: PRODUCT USED FOR UNKNOWN INDICATION
     Dosage: SEVEN CYCLE
     Route: 042
     Dates: start: 20150224

REACTIONS (7)
  - Asphyxia [Recovered/Resolved]
  - Oxygen saturation decreased [Recovered/Resolved]
  - Blood pressure abnormal [Recovered/Resolved]
  - Rash erythematous [Recovered/Resolved]
  - Respiratory disorder [Recovered/Resolved]
  - Infusion related reaction [Recovered/Resolved]
  - Hot flush [Recovered/Resolved]

NARRATIVE: CASE EVENT DATE: 20150224
